FAERS Safety Report 18441315 (Version 3)
Quarter: 2020Q4

REPORT INFORMATION
  Report Type: Spontaneous
  Country: US (occurrence: US)
  Receive Date: 20201029
  Receipt Date: 20201203
  Transmission Date: 20210114
  Serious: No
  Sender: FDA-Public Use
  Company Number: US-PFIZER INC-2020417983

PATIENT
  Age: 73 Year
  Sex: Female

DRUGS (1)
  1. XELJANZ XR [Suspect]
     Active Substance: TOFACITINIB CITRATE
     Dosage: 11 MG

REACTIONS (8)
  - Asthenia [Unknown]
  - Dyspnoea [Not Recovered/Not Resolved]
  - Dysstasia [Unknown]
  - Loss of personal independence in daily activities [Unknown]
  - Painful respiration [Not Recovered/Not Resolved]
  - Dizziness postural [Unknown]
  - Thyroid mass [Unknown]
  - Lung disorder [Unknown]
